FAERS Safety Report 9993380 (Version 2)
Quarter: 2014Q1

REPORT INFORMATION
  Report Type: Spontaneous
  Country: US (occurrence: US)
  Receive Date: 20140310
  Receipt Date: 20140310
  Transmission Date: 20141002
  Serious: Yes (Other)
  Sender: FDA-Public Use
  Company Number: US-GE HEALTHCARE MEDICAL DIAGNOSTICS-OSCN-PR-1007S-0199

PATIENT
  Age: 41 Year
  Sex: Female

DRUGS (6)
  1. GADOLINIUM (UNSPECIFIED) [Suspect]
     Indication: OSTEOMYELITIS
     Dates: start: 20041202, end: 20041202
  2. GADOLINIUM (UNSPECIFIED) [Suspect]
     Indication: MENTAL STATUS CHANGES
     Dates: start: 20050628, end: 20050628
  3. OPTIMARK [Suspect]
     Indication: OEDEMA
     Dates: start: 20050831, end: 20050831
  4. VISIPAQUE [Suspect]
     Indication: PRODUCT USED FOR UNKNOWN INDICATION
     Dates: start: 20050627, end: 20050627
  5. VISIPAQUE [Suspect]
     Dates: start: 20040908, end: 20040908
  6. ISOVUE [Suspect]
     Indication: PRODUCT USED FOR UNKNOWN INDICATION
     Dates: start: 20041223, end: 20041223

REACTIONS (1)
  - Nephrogenic systemic fibrosis [Not Recovered/Not Resolved]
